FAERS Safety Report 13293966 (Version 1)
Quarter: 2017Q1

REPORT INFORMATION
  Report Type: Spontaneous
  Country: DE (occurrence: DE)
  Receive Date: 20170303
  Receipt Date: 20170303
  Transmission Date: 20170428
  Serious: Yes (Other)
  Sender: FDA-Public Use
  Company Number: DE-MYLANLABS-2017M1012956

PATIENT

DRUGS (4)
  1. L-THYROXIN [Concomitant]
     Active Substance: LEVOTHYROXINE SODIUM
     Indication: HYPOTHYROIDISM
     Dosage: 88 [?G/D ]
     Route: 064
     Dates: start: 20160308, end: 20161201
  2. FOLSAURE [Concomitant]
     Active Substance: FOLIC ACID
     Indication: PROPHYLAXIS OF NEURAL TUBE DEFECT
     Route: 064
  3. PARACETAMOL [Concomitant]
     Active Substance: ACETAMINOPHEN
     Indication: PAIN
     Dosage: ON DEMAND
     Route: 064
  4. CITALOPRAM MYLAN [Suspect]
     Active Substance: CITALOPRAM HYDROBROMIDE
     Indication: DEPRESSION
     Dosage: 20 [MG/D (10) ]/ DOSAGE REDUCTION TO 10MG/D FOUR WEEKS BEFORE DELIVERY
     Route: 064
     Dates: start: 20160308, end: 20161201

REACTIONS (7)
  - Large for dates baby [Recovering/Resolving]
  - Hypoglycaemia neonatal [Recovered/Resolved]
  - Hypertonia neonatal [Recovered/Resolved]
  - Respiratory disorder neonatal [Recovered/Resolved]
  - Agitation neonatal [Recovered/Resolved]
  - Congenital choroid plexus cyst [Unknown]
  - Tremor neonatal [Recovered/Resolved]

NARRATIVE: CASE EVENT DATE: 20161201
